FAERS Safety Report 9769855 (Version 2)
Quarter: 2013Q4

REPORT INFORMATION
  Report Type: Spontaneous
  Country: US (occurrence: US)
  Receive Date: 20131218
  Receipt Date: 20131218
  Transmission Date: 20140711
  Serious: No
  Sender: FDA-Public Use
  Company Number: US-VERTEX PHARMACEUTICALS INC-AE-2011-000519

PATIENT
  Sex: 0

DRUGS (7)
  1. INCIVEK [Suspect]
     Indication: HEPATITIS C
     Route: 048
     Dates: start: 20110711
  2. PEGASYS [Concomitant]
     Indication: HEPATITIS C
     Route: 058
     Dates: start: 20110711
  3. RIBASPHERE [Concomitant]
     Indication: HEPATITIS C
     Route: 048
     Dates: start: 20110711
  4. TYLENOL WITH CODEINE [Concomitant]
     Indication: ARTHRALGIA
     Route: 048
  5. PROTONIX [Concomitant]
     Route: 048
  6. SYNTHROID [Concomitant]
     Indication: HYPERTHYROIDISM
     Route: 048
  7. BENADRYL [Concomitant]
     Indication: PRURITUS
     Route: 048

REACTIONS (10)
  - Dyspnoea [Not Recovered/Not Resolved]
  - Influenza like illness [Unknown]
  - Pyrexia [Not Recovered/Not Resolved]
  - Oral herpes [Not Recovered/Not Resolved]
  - Stomatitis [Unknown]
  - Tongue blistering [Not Recovered/Not Resolved]
  - Decreased appetite [Not Recovered/Not Resolved]
  - Asthenia [Not Recovered/Not Resolved]
  - Oral candidiasis [Recovered/Resolved]
  - Nausea [Not Recovered/Not Resolved]
